FAERS Safety Report 12752143 (Version 3)
Quarter: 2018Q3

REPORT INFORMATION
  Report Type: Spontaneous
  Country: US (occurrence: US)
  Receive Date: 20160915
  Receipt Date: 20180913
  Transmission Date: 20181010
  Serious: No
  Sender: FDA-Public Use
  Company Number: US-ASTELLAS-2016US026880

PATIENT
  Age: 77 Year
  Sex: Male

DRUGS (3)
  1. XTANDI [Suspect]
     Active Substance: ENZALUTAMIDE
     Route: 048
  2. XTANDI [Suspect]
     Active Substance: ENZALUTAMIDE
     Route: 048
  3. XTANDI [Suspect]
     Active Substance: ENZALUTAMIDE
     Indication: PROSTATE CANCER
     Route: 065

REACTIONS (8)
  - Sinus disorder [Unknown]
  - Asthenia [Not Recovered/Not Resolved]
  - Nasopharyngitis [Not Recovered/Not Resolved]
  - Abdominal discomfort [Unknown]
  - Pollakiuria [Not Recovered/Not Resolved]
  - Hot flush [Unknown]
  - Decreased appetite [Unknown]
  - Drug dose omission [Unknown]

NARRATIVE: CASE EVENT DATE: 201607
